FAERS Safety Report 6453351-3 (Version None)
Quarter: 2009Q4

REPORT INFORMATION
  Report Type: 
  Country: None (occurrence: None)
  Receive Date: 20091123
  Receipt Date: 20091123
  Transmission Date: 20100525
  Serious: Yes (Hospitalization)
  Sender: FDA-Public Use
  Company Number: None

PATIENT
  Age: 53 Year
  Sex: Female
  Weight: 85.7298 kg

DRUGS (2)
  1. DEPAKOTE ER [Suspect]
     Dosage: 3 TABLETS ONCE A DAY
  2. DIVALPROEX EXTENDED-RELEASE [Suspect]
     Dosage: 3 TABLETS ONCE A DAY

REACTIONS (2)
  - CONVULSION [None]
  - PRODUCT SUBSTITUTION ISSUE [None]
